FAERS Safety Report 24324810 (Version 2)
Quarter: 2024Q3

REPORT INFORMATION
  Report Type: Spontaneous
  Country: IT (occurrence: IT)
  Receive Date: 20240916
  Receipt Date: 20240924
  Transmission Date: 20241016
  Serious: Yes (Life-Threatening, Hospitalization, Other)
  Sender: MYLAN
  Company Number: IT-PFIZER INC-PV202400115454

PATIENT
  Age: 19 Year
  Sex: Female

DRUGS (14)
  1. DEXMEDETOMIDINE [Suspect]
     Active Substance: DEXMEDETOMIDINE
     Indication: Sedation
     Dosage: 1 MICROGRAM/KILOGRAM, 1 HOURS
     Route: 065
  2. CARBIDOPA\LEVODOPA [Suspect]
     Active Substance: CARBIDOPA\LEVODOPA
     Indication: Encephalopathy
     Dosage: UNK
     Route: 065
  3. CARBIDOPA\LEVODOPA [Suspect]
     Active Substance: CARBIDOPA\LEVODOPA
     Indication: Status dystonicus
  4. LEVETIRACETAM [Suspect]
     Active Substance: LEVETIRACETAM
     Indication: Encephalopathy
     Dosage: UNK
     Route: 065
  5. LEVETIRACETAM [Suspect]
     Active Substance: LEVETIRACETAM
     Indication: Status dystonicus
  6. TETRABENAZINE [Suspect]
     Active Substance: TETRABENAZINE
     Indication: Encephalopathy
     Dosage: UNK
     Route: 065
  7. TETRABENAZINE [Suspect]
     Active Substance: TETRABENAZINE
     Indication: Status dystonicus
  8. TRIHEXYPHENIDYL [Suspect]
     Active Substance: TRIHEXYPHENIDYL
     Indication: Encephalopathy
     Dosage: UNK
     Route: 065
  9. TRIHEXYPHENIDYL [Suspect]
     Active Substance: TRIHEXYPHENIDYL
     Indication: Status dystonicus
  10. DIAZEPAM [Suspect]
     Active Substance: DIAZEPAM
     Indication: Status dystonicus
     Dosage: 20 MILLIGRAM
     Route: 054
  11. MIDAZOLAM [Suspect]
     Active Substance: MIDAZOLAM
     Indication: Status dystonicus
     Dosage: 0.5 MILLIGRAM/KILOGRAM, 1 HOURS
     Route: 042
  12. MIDAZOLAM [Suspect]
     Active Substance: MIDAZOLAM
     Indication: Sedation
     Dosage: 0.3 MILLIGRAM/KILOGRAM, 1 HOURS
     Route: 042
  13. PROPOFOL [Suspect]
     Active Substance: PROPOFOL
     Indication: Status dystonicus
     Dosage: 4 MILLIGRAM/KILOGRAM, 1 HOURS
     Route: 065
  14. PROPOFOL [Suspect]
     Active Substance: PROPOFOL
     Indication: Sedation

REACTIONS (2)
  - Drug ineffective for unapproved indication [Unknown]
  - Off label use [Unknown]
